FAERS Safety Report 6272663-X (Version None)
Quarter: 2009Q3

REPORT INFORMATION
  Report Type: 
  Country: None (occurrence: None)
  Receive Date: 20090717
  Receipt Date: 20090706
  Transmission Date: 20100115
  Serious: Yes (Other)
  Sender: FDA-Public Use
  Company Number: AU-ROCHE-641921

PATIENT
  Sex: Female

DRUGS (2)
  1. XELODA [Suspect]
     Dosage: FREQUENCY: X 8 DAILY
     Route: 065
  2. XELODA [Suspect]
     Dosage: FREQUENCY: X 6 DAILY
     Route: 065

REACTIONS (3)
  - PALMAR-PLANTAR ERYTHRODYSAESTHESIA SYNDROME [None]
  - RECALL PHENOMENON [None]
  - SKIN CANCER [None]
